FAERS Safety Report 9597097 (Version 1)
Quarter: 2013Q4

REPORT INFORMATION
  Report Type: Report from Study
  Country: US (occurrence: US)
  Receive Date: 20131004
  Receipt Date: 20131004
  Transmission Date: 20140711
  Serious: Yes (Other)
  Sender: FDA-Public Use
  Company Number: US-ABBVIE-13P-163-1152387-00

PATIENT
  Sex: Female

DRUGS (1)
  1. CREON [Suspect]
     Indication: PANCREATIC INSUFFICIENCY

REACTIONS (17)
  - Haemorrhage [Recovered/Resolved]
  - Haemorrhage [Recovered/Resolved]
  - Fatigue [Recovered/Resolved]
  - Haemoglobin decreased [Recovered/Resolved]
  - Unevaluable event [Recovered/Resolved]
  - Pain [Recovered/Resolved]
  - Ulcer [Recovered/Resolved]
  - Asthenia [Recovered/Resolved]
  - Hypertension [Recovered/Resolved]
  - Dizziness postural [Recovered/Resolved]
  - Food craving [Recovered/Resolved]
  - Salt craving [Recovered/Resolved]
  - Malaise [Recovered/Resolved]
  - Stress [Unknown]
  - Haematemesis [Recovered/Resolved]
  - Splenectomy [Recovered/Resolved]
  - Hepatectomy [Recovered/Resolved]
